FAERS Safety Report 20628669 (Version 2)
Quarter: 2022Q2

REPORT INFORMATION
  Report Type: Spontaneous
  Country: DE (occurrence: DE)
  Receive Date: 20220323
  Receipt Date: 20220413
  Transmission Date: 20220720
  Serious: Yes (Hospitalization, Other)
  Sender: FDA-Public Use
  Company Number: DE-ROCHE-3025709

PATIENT

DRUGS (6)
  1. AZATHIOPRINE [Suspect]
     Active Substance: AZATHIOPRINE
     Indication: Immunosuppression
     Dosage: UNK
     Route: 065
  2. METHOTREXATE [Suspect]
     Active Substance: METHOTREXATE
     Indication: Skin disorder
     Dosage: 15 MILLIGRAM ((5 MONTHS AFTER AHSCT; INTAKE DURATION: 2 MONTHS) )
     Route: 058
  3. RITUXIMAB [Suspect]
     Active Substance: RITUXIMAB
     Indication: Skin disorder
     Dosage: UNK (2X 1 G, 6 + 14 MONTHS)
     Route: 065
  4. CYCLOPHOSPHAMIDE [Suspect]
     Active Substance: CYCLOPHOSPHAMIDE
     Indication: Immunosuppression
     Dosage: UNK
     Route: 065
  5. TOCILIZUMAB [Suspect]
     Active Substance: TOCILIZUMAB
     Indication: Skin disorder
     Dosage: UNK (6 MONTH)
     Route: 058
  6. TOCILIZUMAB [Suspect]
     Active Substance: TOCILIZUMAB
     Dosage: 162 MILLIGRAM (162 MG (6 MONTHS AFTER AHSCT; INTAKE DURATION: 1 MONTH) )
     Route: 058

REACTIONS (3)
  - Pneumocystis jirovecii pneumonia [Unknown]
  - Oesophageal candidiasis [Unknown]
  - Off label use [Unknown]
